FAERS Safety Report 10557260 (Version 1)
Quarter: 2014Q4

REPORT INFORMATION
  Report Type: Spontaneous
  Country: US (occurrence: None)
  Receive Date: 20141029
  Receipt Date: 20141029
  Transmission Date: 20150529
  Serious: Yes (Other)
  Sender: FDA-Public Use
  Company Number: COR_00134_2014

PATIENT
  Age: 8 Month
  Sex: Male

DRUGS (2)
  1. CARBOPLATIN. [Suspect]
     Active Substance: CARBOPLATIN
     Indication: MEDULLOBLASTOMA
     Dosage: 2 DAYS UNTIL NOT CONTINUING, GIVEN OVER 2 HOURS ON DAYS -3 AND -2
     Route: 042
  2. THIOTEPA. [Suspect]
     Active Substance: THIOTEPA
     Indication: MEDULLOBLASTOMA
     Dosage: 2 DAYS UNTIL NOT CONTINUING, GIVEN OVER 2 HOURS ON DAYS -3 AND -2
     Route: 042

REACTIONS (6)
  - Neutropenia [None]
  - Transaminases increased [None]
  - Status epilepticus [None]
  - Haematotoxicity [None]
  - Pyrexia [None]
  - Hyperbilirubinaemia [None]
